FAERS Safety Report 11663433 (Version 11)
Quarter: 2016Q2

REPORT INFORMATION
  Report Type: Spontaneous
  Country: US (occurrence: US)
  Receive Date: 20151027
  Receipt Date: 20160504
  Transmission Date: 20160815
  Serious: Yes (Hospitalization, Other)
  Sender: FDA-Public Use
  Company Number: US-PFIZER INC-2015332749

PATIENT
  Age: 68 Year
  Sex: Female
  Weight: 138 kg

DRUGS (15)
  1. SUTENT [Suspect]
     Active Substance: SUNITINIB MALATE
     Dosage: 25 MG, CYCLIC (25 MG-28 DAYS ON/14 DAYS OFF)
     Dates: start: 20160322
  2. SUTENT [Suspect]
     Active Substance: SUNITINIB MALATE
     Dosage: 50 MG, CYCLIC (50 MG 28 DAYS ON/14 DAYS OFF)
     Dates: start: 20151117, end: 20151202
  3. TAXOL [Suspect]
     Active Substance: PACLITAXEL
     Indication: BREAST ANGIOSARCOMA METASTATIC
     Dosage: UNK
     Dates: start: 20151117
  4. COUMADIN [Concomitant]
     Active Substance: WARFARIN SODIUM
     Dosage: BLOOD LEVEL WAS LOW, DOSE INCREASED
  5. LACTULOSE. [Concomitant]
     Active Substance: LACTULOSE
     Dosage: UNK
  6. SUTENT [Suspect]
     Active Substance: SUNITINIB MALATE
     Dosage: 50 MG, CYCLIC (28 DAYS ON/14 DAYS OFF)
     Dates: start: 20151020, end: 20151102
  7. COUMADIN [Concomitant]
     Active Substance: WARFARIN SODIUM
     Indication: DEEP VEIN THROMBOSIS
     Dosage: UNK
  8. OXYCODONE [Concomitant]
     Active Substance: OXYCODONE
     Dosage: UNK
  9. DILTIAZEM [Concomitant]
     Active Substance: DILTIAZEM
     Dosage: UNK
  10. SUTENT [Suspect]
     Active Substance: SUNITINIB MALATE
     Indication: BREAST ANGIOSARCOMA METASTATIC
     Dosage: 50 MG, CYCLIC (28 DAYS ON/14 DAYS OFF)
     Dates: start: 20150929, end: 20151013
  11. AROMASIN [Concomitant]
     Active Substance: EXEMESTANE
     Indication: BREAST CANCER
     Dosage: UNK
  12. SYNTHROID [Concomitant]
     Active Substance: LEVOTHYROXINE SODIUM
     Dosage: UNK
  13. METOPROLOL. [Concomitant]
     Active Substance: METOPROLOL
     Dosage: UNK
  14. AMLODIPINE [Concomitant]
     Active Substance: AMLODIPINE BESYLATE
     Dosage: UNK
  15. SENNA [Concomitant]
     Active Substance: SENNA LEAF\SENNOSIDES\SENNOSIDES A AND B
     Indication: CONSTIPATION
     Dosage: UNK

REACTIONS (27)
  - Body temperature increased [Not Recovered/Not Resolved]
  - Gait disturbance [Unknown]
  - Pancytopenia [Unknown]
  - Dysphagia [Recovering/Resolving]
  - Disorientation [Unknown]
  - Rash [Unknown]
  - Peripheral swelling [Unknown]
  - Fatigue [Not Recovered/Not Resolved]
  - Cough [Not Recovered/Not Resolved]
  - Pain [Unknown]
  - Dysphonia [Unknown]
  - Dyspnoea [Recovering/Resolving]
  - Alopecia [Unknown]
  - Memory impairment [Unknown]
  - Abdominal discomfort [Recovered/Resolved]
  - Listless [Unknown]
  - Malaise [Unknown]
  - Abdominal pain lower [Unknown]
  - Urinary tract infection [Unknown]
  - Hypertension [Unknown]
  - Dry mouth [Unknown]
  - Product use issue [Unknown]
  - Chromaturia [Unknown]
  - Impaired healing [Recovering/Resolving]
  - Dysgeusia [Unknown]
  - Dehydration [Unknown]
  - White blood cell count decreased [Unknown]

NARRATIVE: CASE EVENT DATE: 20151102
